FAERS Safety Report 6519428-9 (Version None)
Quarter: 2009Q4

REPORT INFORMATION
  Report Type: 
  Country: None (occurrence: None)
  Receive Date: 20091224
  Receipt Date: 20091224
  Transmission Date: 20100525
  Serious: No
  Sender: FDA-Public Use
  Company Number: None

PATIENT
  Age: 52 Year
  Sex: Male

DRUGS (1)
  1. TESTOSTERONE [Suspect]
     Dosage: 5 MG EVERY DAY TOP
     Route: 061
     Dates: start: 20090618, end: 20091120

REACTIONS (1)
  - RASH [None]
